FAERS Safety Report 10398495 (Version 2)
Quarter: 2015Q1

REPORT INFORMATION
  Report Type: Spontaneous
  Country: US (occurrence: US)
  Receive Date: 20140821
  Receipt Date: 20150223
  Transmission Date: 20150720
  Serious: Yes (Other)
  Sender: FDA-Public Use
  Company Number: US-CELGENEUS-163-21880-14082955

PATIENT
  Age: 58 Year
  Sex: Male

DRUGS (2)
  1. REVLIMID [Suspect]
     Active Substance: LENALIDOMIDE
     Indication: MYELODYSPLASTIC SYNDROME
     Route: 048
     Dates: start: 20140721
  2. REVLIMID [Suspect]
     Active Substance: LENALIDOMIDE
     Route: 048
     Dates: start: 201410, end: 2014

REACTIONS (5)
  - Anaemia [Unknown]
  - Neutropenia [Unknown]
  - Jaundice [Unknown]
  - Rash papular [Unknown]
  - Unevaluable event [Recovered/Resolved]

NARRATIVE: CASE EVENT DATE: 2014
